FAERS Safety Report 5690739-2 (Version None)
Quarter: 2008Q2

REPORT INFORMATION
  Report Type: 
  Country: None (occurrence: None)
  Receive Date: 20080401
  Receipt Date: 20080320
  Transmission Date: 20081010
  Serious: Yes (Other)
  Sender: FDA-Public Use
  Company Number: CA-ELI_LILLY_AND_COMPANY-CA200803005348

PATIENT
  Age: 16 Year
  Sex: Female
  Weight: 59 kg

DRUGS (2)
  1. STRATTERA [Suspect]
     Indication: ANXIETY
     Dosage: 25 MG, EACH MORNING
     Dates: start: 20080211, end: 20080224
  2. STRATTERA [Suspect]
     Dosage: 40 MG, UNK
     Dates: start: 20080225, end: 20080229

REACTIONS (10)
  - BLOOD PRESSURE [None]
  - DIZZINESS [None]
  - DYSPEPSIA [None]
  - FATIGUE [None]
  - HEADACHE [None]
  - MOOD ALTERED [None]
  - SOMNOLENCE [None]
  - STOMACH DISCOMFORT [None]
  - SUICIDAL IDEATION [None]
  - SYNCOPE [None]
